FAERS Safety Report 5869651-1 (Version None)
Quarter: 2008Q3

REPORT INFORMATION
  Report Type: 
  Country: None (occurrence: None)
  Receive Date: 20080904
  Receipt Date: 20080121
  Transmission Date: 20090109
  Serious: No
  Sender: FDA-Public Use
  Company Number: US-BAYER-200830653NA

PATIENT
  Age: 35 Year
  Sex: Female

DRUGS (1)
  1. AVELOX [Suspect]
     Indication: DRUG USE FOR UNKNOWN INDICATION
     Route: 048
     Dates: start: 20070101, end: 20070101

REACTIONS (6)
  - ADVERSE DRUG REACTION [None]
  - ERYTHEMA [None]
  - GAIT DISTURBANCE [None]
  - JOINT SWELLING [None]
  - PAIN IN EXTREMITY [None]
  - SKIN EXFOLIATION [None]
